FAERS Safety Report 9604547 (Version 3)
Quarter: 2013Q4

REPORT INFORMATION
  Report Type: Spontaneous
  Country: US (occurrence: US)
  Receive Date: 20131008
  Receipt Date: 20131202
  Transmission Date: 20140711
  Serious: Yes (Hospitalization, Other)
  Sender: FDA-Public Use
  Company Number: US-PFIZER INC-2013285338

PATIENT
  Sex: Female

DRUGS (13)
  1. LYRICA [Suspect]
     Dosage: 25 MG, 2X/DAY
     Route: 048
  2. CLARITIN [Concomitant]
     Dosage: 10 MG, 1X/DAY
     Route: 048
  3. METFORMIN ER [Concomitant]
     Dosage: 500 MG, 2X/DAY
     Route: 048
  4. SAVELLA [Concomitant]
     Dosage: 50 MG, 1X/DAY
     Route: 048
  5. VALTREX [Concomitant]
     Dosage: 500 MG, 1X/DAY
     Route: 048
  6. HYDRODIURIL [Concomitant]
     Dosage: 12.5 MG, 1X/DAY
     Route: 048
  7. NEURONTIN [Concomitant]
     Dosage: 900 MG, 3X/DAY
     Route: 048
  8. DEPAKOTE ER [Concomitant]
     Dosage: 250 MG, AT BED TIME
     Route: 048
  9. SYNTHROID [Concomitant]
     Dosage: 0.05 MG, 1X/DAY
     Route: 048
  10. PRAVACHOL [Concomitant]
     Dosage: 10 MG, UNK
     Route: 048
  11. TORADOL [Concomitant]
     Dosage: 60 MG/2 ML VIAL
     Route: 030
  12. KEFLEX [Concomitant]
     Dosage: 500 MG, 4X/DAY
     Route: 048
  13. NORCO [Concomitant]
     Dosage: 5MG/325MG TABLET; 1 TAB EVERY 4-6 HOURS AS NEEDED
     Route: 048

REACTIONS (4)
  - Tooth disorder [Unknown]
  - Swelling face [Unknown]
  - Tooth abscess [Unknown]
  - Dental caries [Unknown]
